FAERS Safety Report 16326520 (Version 1)
Quarter: 2019Q2

REPORT INFORMATION
  Report Type: Spontaneous
  Country: US (occurrence: US)
  Receive Date: 20190517
  Receipt Date: 20190517
  Transmission Date: 20190711
  Serious: Yes (Life-Threatening, Hospitalization, Other)
  Sender: FDA-Public Use
  Company Number: US-ALLERGAN-1920506US

PATIENT
  Sex: Male

DRUGS (12)
  1. MORPHINE SULFATE UNK [Interacting]
     Active Substance: MORPHINE SULFATE
     Dosage: LOW DOSE
  2. INSULIN [Concomitant]
     Active Substance: INSULIN NOS
  3. NIACIN. [Concomitant]
     Active Substance: NIACIN
  4. OMEPRAZOLE. [Concomitant]
     Active Substance: OMEPRAZOLE
  5. MORPHINE SULFATE UNK [Suspect]
     Active Substance: MORPHINE SULFATE
     Indication: PAIN
     Dosage: 60 MG, BID
  6. GABAPENTIN. [Interacting]
     Active Substance: GABAPENTIN
     Indication: PAIN
     Dosage: 1000 MG, TID
  7. GABAPENTIN. [Interacting]
     Active Substance: GABAPENTIN
     Dosage: 300 UNK
     Route: 050
  8. GABAPENTIN. [Interacting]
     Active Substance: GABAPENTIN
     Dosage: 300 UNK
     Route: 050
  9. VALSARTAN. [Concomitant]
     Active Substance: VALSARTAN
  10. OXYCODONE AND ACETAMINOPHEN [Interacting]
     Active Substance: ACETAMINOPHEN\OXYCODONE HYDROCHLORIDE
     Indication: PAIN
     Dosage: 10/325 MG
  11. METFORMIN [Concomitant]
     Active Substance: METFORMIN HYDROCHLORIDE
     Indication: DIABETES MELLITUS
  12. LEVOTHYROXINE. [Concomitant]
     Active Substance: LEVOTHYROXINE

REACTIONS (9)
  - Encephalopathy [Recovering/Resolving]
  - Incorrect dose administered [Unknown]
  - Respiratory acidosis [Recovered/Resolved]
  - Toxicity to various agents [Recovered/Resolved]
  - Acute kidney injury [Recovered/Resolved]
  - Agitation [Recovered/Resolved]
  - Acute respiratory failure [Recovered/Resolved]
  - Drug interaction [Recovered/Resolved]
  - Overdose [Unknown]
